FAERS Safety Report 9332809 (Version 1)
Quarter: 2013Q2

REPORT INFORMATION
  Report Type: Report from Study
  Country: CA (occurrence: CA)
  Receive Date: 20130606
  Receipt Date: 20130606
  Transmission Date: 20140414
  Serious: Yes (Other)
  Sender: FDA-Public Use
  Company Number: CA-JNJFOC-20130502905

PATIENT
  Age: 77 Year
  Sex: Male
  Weight: 87.7 kg

DRUGS (4)
  1. REMICADE [Suspect]
     Indication: COLITIS ULCERATIVE
     Dosage: 2ND INFUSION DOSE
     Route: 042
  2. REMICADE [Suspect]
     Indication: COLITIS ULCERATIVE
     Route: 042
     Dates: start: 201212
  3. PREDNISONE [Concomitant]
     Indication: COLITIS ULCERATIVE
     Route: 065
     Dates: start: 201303
  4. PREDNISONE [Concomitant]
     Indication: COLITIS ULCERATIVE
     Route: 065

REACTIONS (5)
  - Lacrimation increased [Recovering/Resolving]
  - Colitis ulcerative [Recovering/Resolving]
  - Laceration [Unknown]
  - Onychomycosis [Recovering/Resolving]
  - Localised infection [Recovering/Resolving]
